FAERS Safety Report 4791074-7 (Version None)
Quarter: 2005Q4

REPORT INFORMATION
  Report Type: 
  Country: None (occurrence: None)
  Receive Date: 20051005
  Receipt Date: 20050920
  Transmission Date: 20060501
  Serious: Yes (Hospitalization)
  Sender: FDA-Public Use
  Company Number: DSA_27132_2005

PATIENT
  Age: 81 Year
  Sex: Female

DRUGS (4)
  1. TEMESTA [Suspect]
     Dosage: 1 MG Q DAY PO
     Route: 048
  2. DEROXAT [Suspect]
     Dosage: 10 MG Q DAY PO
     Route: 048
  3. FURADANTIN [Suspect]
     Dosage: 2 DF Q DAY PO
     Route: 048
     Dates: start: 20010101, end: 20050726
  4. SINGULAIR [Suspect]
     Dosage: 10 MG Q DAY PO
     Route: 048
     Dates: end: 20050726

REACTIONS (2)
  - HYPOXIA [None]
  - INTERSTITIAL LUNG DISEASE [None]
